FAERS Safety Report 4488219-5 (Version None)
Quarter: 2004Q4

REPORT INFORMATION
  Report Type: 
  Country: None (occurrence: None)
  Receive Date: 20041026
  Receipt Date: 20041006
  Transmission Date: 20050328
  Serious: Yes (Other)
  Sender: FDA-Public Use
  Company Number: US_000643199

PATIENT
  Age: 27 Year
  Sex: Male
  Weight: 66 kg

DRUGS (3)
  1. HUMULIN 70/30 [Suspect]
     Indication: DIABETES MELLITUS
     Dosage: 32 U/DAY
     Dates: start: 19900101
  2. HUMALOG [Suspect]
     Indication: DIABETES MELLITUS
     Dosage: 6 U/IN THE EVENING
     Dates: start: 20000606
  3. LANTUS [Concomitant]

REACTIONS (5)
  - BLINDNESS UNILATERAL [None]
  - DIABETIC KETOACIDOSIS [None]
  - DIABETIC RETINOPATHY [None]
  - EYE HAEMORRHAGE [None]
  - HYPERGLYCAEMIA [None]
